FAERS Safety Report 11344555 (Version 1)
Quarter: 2015Q3

REPORT INFORMATION
  Report Type: Spontaneous
  Country: US (occurrence: US)
  Receive Date: 20150806
  Receipt Date: 20150806
  Transmission Date: 20151125
  Serious: No
  Sender: FDA-Public Use
  Company Number: US-BAUSCH-2015ST000036

PATIENT
  Sex: Female
  Weight: 158.73 kg

DRUGS (1)
  1. GLUMETZA [Suspect]
     Active Substance: METFORMIN HYDROCHLORIDE
     Indication: DIABETES MELLITUS
     Dosage: 500 MG, TWICE A DAY
     Route: 048

REACTIONS (1)
  - Drug ineffective [Unknown]
